FAERS Safety Report 5706654-1 (Version None)
Quarter: 2008Q2

REPORT INFORMATION
  Report Type: 
  Country: None (occurrence: None)
  Receive Date: 20080416
  Receipt Date: 20080410
  Transmission Date: 20081010
  Serious: Yes (Hospitalization, Other)
  Sender: FDA-Public Use
  Company Number: AU-RANBAXY-2008RR-14335

PATIENT

DRUGS (1)
  1. ACETAMINOPHEN [Suspect]
     Indication: SUICIDE ATTEMPT
     Dosage: 64 G, UNK

REACTIONS (4)
  - COAGULOPATHY [None]
  - NAUSEA [None]
  - OVERDOSE [None]
  - VOMITING [None]
